FAERS Safety Report 14930803 (Version 1)
Quarter: 2018Q2

REPORT INFORMATION
  Report Type: Spontaneous
  Country: FR (occurrence: FR)
  Receive Date: 20180524
  Receipt Date: 20180524
  Transmission Date: 20180711
  Serious: Yes (Other)
  Sender: FDA-Public Use
  Company Number: FR-MERCK KGAA-2048354

PATIENT
  Age: 48 Year
  Sex: Female

DRUGS (3)
  1. NOVOTHYROX [Suspect]
     Active Substance: LEVOTHYROXINE SODIUM
     Indication: AUTOIMMUNE THYROIDITIS
     Dates: start: 201703
  2. NOVOTHYROX [Suspect]
     Active Substance: LEVOTHYROXINE SODIUM
  3. NOVOTHYROX [Suspect]
     Active Substance: LEVOTHYROXINE SODIUM
     Indication: HYPOTHYROIDISM
     Dates: start: 201703

REACTIONS (29)
  - Psychotic disorder [Recovering/Resolving]
  - Impatience [Recovering/Resolving]
  - Dizziness [Recovering/Resolving]
  - Feeling abnormal [Recovering/Resolving]
  - Personal relationship issue [Recovering/Resolving]
  - Blood thyroid stimulating hormone increased [Recovered/Resolved]
  - Abnormal behaviour [Recovering/Resolving]
  - Social avoidant behaviour [Recovering/Resolving]
  - Pain in extremity [Recovering/Resolving]
  - Indifference [Recovering/Resolving]
  - Fatigue [Recovering/Resolving]
  - Hypokinesia [Recovering/Resolving]
  - Weight increased [Recovering/Resolving]
  - Crying [Recovering/Resolving]
  - Mood swings [Recovering/Resolving]
  - Asthenia [Recovering/Resolving]
  - Pain [Recovering/Resolving]
  - Hypothyroidism [Recovered/Resolved]
  - Insomnia [Recovering/Resolving]
  - Myalgia [Recovering/Resolving]
  - Movement disorder [Recovering/Resolving]
  - Anxiety [Recovering/Resolving]
  - Impaired work ability [Recovering/Resolving]
  - Limb discomfort [Recovering/Resolving]
  - Personality disorder [Recovering/Resolving]
  - Alopecia [Recovered/Resolved]
  - Depression [Recovering/Resolving]
  - Aggression [Recovering/Resolving]
  - Muscle spasms [Recovering/Resolving]

NARRATIVE: CASE EVENT DATE: 2017
